FAERS Safety Report 16032644 (Version 1)
Quarter: 2019Q1

REPORT INFORMATION
  Report Type: Spontaneous
  Country: CZ (occurrence: CZ)
  Receive Date: 20190305
  Receipt Date: 20190305
  Transmission Date: 20190418
  Serious: Yes (Other)
  Sender: FDA-Public Use
  Company Number: CZ-TEVA-2019-CZ-1017838

PATIENT
  Age: 86 Year
  Sex: Male

DRUGS (7)
  1. DITHIADEN [Concomitant]
     Active Substance: BISULEPIN
     Dosage: 1 DOSAGE FORMS DAILY; 0-0-1/2
  2. XARELTO [Concomitant]
     Active Substance: RIVAROXABAN
     Dosage: 1 DOSAGE FORMS DAILY; 1-0-0
  3. MILURIT 100 [Concomitant]
     Dosage: 1 DOSAGE FORMS DAILY; 0-1-0
  4. LOZAP [Concomitant]
     Dosage: 1 DOSAGE FORMS DAILY; 1/2-0-0
  5. FURON [Suspect]
     Active Substance: FUROSEMIDE
     Indication: OEDEMA
     Dosage: 1 - 1/2 - 0
     Route: 048
     Dates: start: 2018
  6. DIGOXIN. [Concomitant]
     Active Substance: DIGOXIN
     Dosage: 1 DOSAGE FORMS DAILY; 1-0-0
  7. SORBIFER [Concomitant]
     Active Substance: FERROUS SULFATE
     Dosage: 1 DOSAGE FORMS DAILY; 1-0-0

REACTIONS (7)
  - Dizziness [Unknown]
  - Loss of consciousness [Unknown]
  - Hypotension [Unknown]
  - Pruritus generalised [Unknown]
  - Gout [Unknown]
  - Anaemia [Unknown]
  - Fall [Unknown]

NARRATIVE: CASE EVENT DATE: 2018
